FAERS Safety Report 4826052-2 (Version None)
Quarter: 2005Q4

REPORT INFORMATION
  Report Type: 
  Country: None (occurrence: None)
  Receive Date: 20051014
  Receipt Date: 20050707
  Transmission Date: 20060501
  Serious: No
  Sender: FDA-Public Use
  Company Number: 2005SP001788

PATIENT
  Age: 71 Year
  Sex: Female
  Weight: 65.7716 kg

DRUGS (14)
  1. LUNESTA [Suspect]
     Indication: SLEEP DISORDER
     Dosage: 2 MG HS ORAL; 3 MG HS ORAL
     Route: 048
     Dates: start: 20050705, end: 20050801
  2. LUNESTA [Suspect]
     Indication: SLEEP DISORDER
     Dosage: 2 MG HS ORAL; 3 MG HS ORAL
     Route: 048
     Dates: start: 20050801
  3. SINGULAIR [Concomitant]
  4. ULTRAM [Concomitant]
  5. LOTREL [Concomitant]
  6. MOBIC [Concomitant]
  7. SYNTHROID [Concomitant]
  8. CYTOMEL [Concomitant]
  9. MULTIVITAMIN [Concomitant]
  10. ASCORBIC ACID [Concomitant]
  11. ALLEGRA [Concomitant]
  12. PULMICORT [Concomitant]
  13. INTAL [Concomitant]
  14. MAXAIR [Concomitant]

REACTIONS (3)
  - FATIGUE [None]
  - INSOMNIA [None]
  - SLEEP DISORDER [None]
